FAERS Safety Report 25294781 (Version 1)
Quarter: 2025Q2

REPORT INFORMATION
  Report Type: Spontaneous
  Country: US (occurrence: US)
  Receive Date: 20250511
  Receipt Date: 20250511
  Transmission Date: 20250716
  Serious: No
  Sender: SANOFI AVENTIS
  Company Number: US-SA-2025SA132805

PATIENT
  Sex: Male
  Weight: 84.09 kg

DRUGS (8)
  1. DUPIXENT [Suspect]
     Active Substance: DUPILUMAB
     Indication: Dermatitis atopic
     Dosage: 300 MG, QOW
     Route: 058
  2. CIPROFLOXACIN HYDROCHLORIDE [Concomitant]
     Active Substance: CIPROFLOXACIN HYDROCHLORIDE
  3. LISINOPRIL [Concomitant]
     Active Substance: LISINOPRIL
  4. NAPROXEN [Concomitant]
     Active Substance: NAPROXEN
  5. FLUOCINONIDE [Concomitant]
     Active Substance: FLUOCINONIDE
  6. CLOBETASOL [Concomitant]
     Active Substance: CLOBETASOL
  7. CIALIS [Concomitant]
     Active Substance: TADALAFIL
  8. COLCHICINE [Concomitant]
     Active Substance: COLCHICINE

REACTIONS (3)
  - Prostatic specific antigen increased [Unknown]
  - Blood cholesterol abnormal [Unknown]
  - Urinary tract infection [Unknown]
